FAERS Safety Report 4658642-4 (Version None)
Quarter: 2005Q2

REPORT INFORMATION
  Report Type: 
  Country: None (occurrence: None)
  Receive Date: 20050510
  Receipt Date: 20050510
  Transmission Date: 20051028
  Serious: Yes (Hospitalization)
  Sender: FDA-Public Use
  Company Number: None

PATIENT
  Age: 78 Year
  Sex: Female

DRUGS (17)
  1. AMLODIPINE [Suspect]
     Indication: HYPERTENSION
     Dosage: 10 MG  QD  OTHER
     Route: 050
     Dates: start: 20050115, end: 20050301
  2. ATENOLOL [Concomitant]
  3. ENALAPRIL MALEATE [Concomitant]
  4. FOLIC ACID [Concomitant]
  5. MULTI-VITAMIN [Concomitant]
  6. METFORMIN [Concomitant]
  7. PREVACID [Concomitant]
  8. SIMVASTATIN [Concomitant]
  9. CEFIPIME [Concomitant]
  10. LEVOFLOXACIN [Concomitant]
  11. SOLU-MEDROL [Concomitant]
  12. GLIPIZIDE [Concomitant]
  13. CLIDNAMYCIN [Concomitant]
  14. CEFTIN [Concomitant]
  15. HEPARIN [Concomitant]
  16. ASPIRIN [Concomitant]
  17. PLAVIX [Concomitant]

REACTIONS (1)
  - THROMBOCYTOPENIA [None]
